FAERS Safety Report 4307611-2 (Version None)
Quarter: 2004Q1

REPORT INFORMATION
  Report Type: 
  Country: None (occurrence: None)
  Receive Date: 20040227
  Receipt Date: 20040227
  Transmission Date: 20041129
  Serious: No
  Sender: FDA-Public Use
  Company Number: None

PATIENT
  Sex: Male
  Weight: 137.8935 kg

DRUGS (9)
  1. SOMAVERT [Suspect]
     Indication: ACROMEGALY
     Dosage: 40MG LOADING DO SUBCUTANEOUS
     Route: 058
     Dates: start: 20030605, end: 20030605
  2. SOMAVERT [Suspect]
     Indication: ACROMEGALY
     Dosage: 10MG DAILY SUBCUTANEOUS
     Route: 058
     Dates: start: 20030606, end: 20030618
  3. ASTRON [Concomitant]
  4. SYNTHROID [Concomitant]
  5. GLUCOPHAGE [Concomitant]
  6. GLYBURIDE [Concomitant]
  7. LIPITOR [Concomitant]
  8. ACTIGAL [Concomitant]
  9. SANDOSTATIN [Concomitant]

REACTIONS (2)
  - INJECTION SITE ERYTHEMA [None]
  - INJECTION SITE PRURITUS [None]
